FAERS Safety Report 4654634-X (Version None)
Quarter: 2005Q2

REPORT INFORMATION
  Report Type: 
  Country: None (occurrence: None)
  Receive Date: 20050503
  Receipt Date: 20050503
  Transmission Date: 20051028
  Serious: Yes (Other)
  Sender: FDA-Public Use
  Company Number: None

PATIENT
  Sex: Female
  Weight: 14 kg

DRUGS (6)
  1. METHOTREXATE [Suspect]
     Dosage: ORAL
     Route: 048
     Dates: start: 20041229, end: 20050309
  2. MERCAPTOPURINE [Suspect]
     Dates: start: 20050209
  3. METHOTREXATE [Suspect]
     Dates: start: 20050309
  4. VINCRISTINE SULFATE [Suspect]
     Dates: start: 20050126
  5. SEPTRA [Concomitant]
  6. ZANTAC [Concomitant]

REACTIONS (5)
  - CENTRAL LINE INFECTION [None]
  - PANCYTOPENIA [None]
  - PROCTITIS [None]
  - STAPHYLOCOCCAL BACTERAEMIA [None]
  - STOMATITIS [None]
